FAERS Safety Report 11324809 (Version 1)
Quarter: 2015Q3

REPORT INFORMATION
  Report Type: Spontaneous
  Country: US (occurrence: US)
  Receive Date: 20150730
  Receipt Date: 20150730
  Transmission Date: 20151125
  Serious: No
  Sender: FDA-Public Use
  Company Number: US-IMPAX LABORATORIES, INC-2015-IPXL-00596

PATIENT
  Age: 67 Year
  Sex: Male

DRUGS (2)
  1. REQUIP XL [Concomitant]
     Active Substance: ROPINIROLE HYDROCHLORIDE
     Indication: PRODUCT USED FOR UNKNOWN INDICATION
     Dosage: 2 MG, QID
     Route: 048
  2. RYTARY [Suspect]
     Active Substance: CARBIDOPA\LEVODOPA
     Indication: PARKINSON^S DISEASE
     Dosage: TWO TABLETS FOUR TIMES A DAY
     Route: 048
     Dates: start: 20150226, end: 20150501

REACTIONS (1)
  - Dropped head syndrome [Recovering/Resolving]

NARRATIVE: CASE EVENT DATE: 20150430
